FAERS Safety Report 9563721 (Version 1)
Quarter: 2013Q3

REPORT INFORMATION
  Report Type: Spontaneous
  Country: US (occurrence: None)
  Receive Date: 20130926
  Receipt Date: 20130926
  Transmission Date: 20140515
  Serious: No
  Sender: FDA-Public Use
  Company Number: None

PATIENT
  Sex: 0

DRUGS (1)
  1. PROLIA [Suspect]
     Indication: OSTEOPOROSIS POSTMENOPAUSAL
     Dosage: FIRST SHOT TAKEN FEB 19, 2013. NO PROBLEM

REACTIONS (3)
  - Pruritus generalised [None]
  - Rash [None]
  - Rash [None]
